FAERS Safety Report 9286001 (Version 1)
Quarter: 2013Q2

REPORT INFORMATION
  Report Type: Spontaneous
  Country: US (occurrence: None)
  Receive Date: 20130507
  Receipt Date: 20130507
  Transmission Date: 20140414
  Serious: No
  Sender: FDA-Public Use
  Company Number: 2013P1005208

PATIENT
  Age: 18 Year
  Sex: Male
  Weight: 73.48 kg

DRUGS (3)
  1. METHYLPREDNISOLONE [Suspect]
     Indication: WISDOM TEETH REMOVAL
     Route: 048
     Dates: start: 20130128, end: 20130202
  2. FLOVENT [Suspect]
     Indication: ASTHMA
     Dates: start: 2012
  3. PREDNISONE [Suspect]
     Indication: ASTHMA
     Dates: start: 1999

REACTIONS (7)
  - Agitation [None]
  - Abnormal behaviour [None]
  - Anger [None]
  - Feeling abnormal [None]
  - Violence-related symptom [None]
  - Anxiety [None]
  - Depression [None]
